FAERS Safety Report 7292840-9 (Version None)
Quarter: 2011Q1

REPORT INFORMATION
  Report Type: 
  Country: None (occurrence: None)
  Receive Date: 20110203
  Receipt Date: 20110120
  Transmission Date: 20110831
  Serious: Yes (Hospitalization)
  Sender: FDA-Public Use
  Company Number: 023736

PATIENT
  Sex: Female
  Weight: 64.9 kg

DRUGS (5)
  1. ACETAMINOPHEN [Concomitant]
  2. FLINSTONES [Concomitant]
  3. PHENERGAN [Concomitant]
  4. CIMZIA [Suspect]
     Indication: CROHN'S DISEASE
     Dosage: 400 MG 1X/MONTH; SUBCUTANEOUS
     Route: 058
     Dates: start: 20100330
  5. HYDROCODONE BITARTRATE [Concomitant]

REACTIONS (22)
  - STRESS [None]
  - GASTROOESOPHAGEAL REFLUX DISEASE [None]
  - MYALGIA [None]
  - ULCER [None]
  - NECK PAIN [None]
  - LYMPH NODE PAIN [None]
  - SINUS HEADACHE [None]
  - ABASIA [None]
  - MUSCULOSKELETAL PAIN [None]
  - ARTHRALGIA [None]
  - WHITE BLOOD CELL COUNT INCREASED [None]
  - DIARRHOEA [None]
  - BACK PAIN [None]
  - NASAL INFLAMMATION [None]
  - CROHN'S DISEASE [None]
  - CONDITION AGGRAVATED [None]
  - FOOD POISONING [None]
  - NAUSEA [None]
  - HEADACHE [None]
  - FATIGUE [None]
  - CONSTIPATION [None]
  - ABDOMINAL PAIN [None]
